FAERS Safety Report 18806136 (Version 1)
Quarter: 2021Q1

REPORT INFORMATION
  Report Type: Spontaneous
  Country: BR (occurrence: BR)
  Receive Date: 20210129
  Receipt Date: 20210129
  Transmission Date: 20210419
  Serious: Yes (Death, Other)
  Sender: FDA-Public Use
  Company Number: BR-LUPIN PHARMACEUTICALS INC.-2021-00787

PATIENT
  Age: 25 Year
  Sex: Female

DRUGS (12)
  1. OSELTAMIVIR PHOSPHATE. [Suspect]
     Active Substance: OSELTAMIVIR PHOSPHATE
     Indication: COVID-19
     Dosage: 75 MILLIGRAM, BID (12/12H)
     Route: 065
     Dates: start: 2020
  2. ENOXAPARIN [Concomitant]
     Active Substance: ENOXAPARIN
     Indication: THROMBOSIS PROPHYLAXIS
     Dosage: 40 MILLIGRAM, QD
     Route: 065
  3. BENZATHINE PENICILLIN G [Suspect]
     Active Substance: PENICILLIN G BENZATHINE
     Indication: MITRAL VALVE DISEASE
     Dosage: UNK?1.200.000 UI, EVERY 21 DAYS
     Route: 065
  4. CHLOROQUINE DIPHOSPHATE [Suspect]
     Active Substance: CHLOROQUINE PHOSPHATE
     Indication: COVID-19
     Dosage: 450 MILLIGRAM, QD
     Route: 065
  5. DOBUTAMINE [Concomitant]
     Active Substance: DOBUTAMINE HYDROCHLORIDE
     Indication: HAEMODYNAMIC INSTABILITY
     Dosage: UNK
     Route: 065
  6. ACETYLSALICILIC ACID [Suspect]
     Active Substance: ASPIRIN
     Indication: MITRAL VALVE DISEASE
     Dosage: 100 MILLIGRAM, QD
     Route: 065
  7. PIPERACILLIN/TAZOBACTAM [Suspect]
     Active Substance: PIPERACILLIN SODIUM\TAZOBACTAM SODIUM
     Indication: COVID-19
     Dosage: 4.5G (6/6 H)
     Route: 065
     Dates: start: 2020
  8. FUROSEMIDE. [Concomitant]
     Active Substance: FUROSEMIDE
     Indication: PRODUCT USED FOR UNKNOWN INDICATION
     Dosage: UNK?2 AMPOULES 8/8 H
     Route: 065
  9. AZITHROMYCIN ANHYDROUS. [Suspect]
     Active Substance: AZITHROMYCIN ANHYDROUS
     Indication: COVID-19
     Dosage: 500 MILLIGRAM, QD
     Route: 065
     Dates: start: 2020
  10. CABERGOLINE. [Concomitant]
     Active Substance: CABERGOLINE
     Indication: LACTATION INHIBITION THERAPY
     Dosage: UNK
     Route: 065
  11. CARVEDILOL. [Suspect]
     Active Substance: CARVEDILOL
     Indication: MITRAL VALVE DISEASE
     Dosage: 3.125MG (12/12H)
     Route: 065
  12. NOREPINEPHRINE. [Concomitant]
     Active Substance: NOREPINEPHRINE
     Indication: HAEMODYNAMIC INSTABILITY
     Dosage: UNK
     Route: 065

REACTIONS (3)
  - Off label use [Unknown]
  - Premature delivery [Unknown]
  - Maternal exposure during pregnancy [Unknown]
